FAERS Safety Report 7813696-9 (Version None)
Quarter: 2011Q4

REPORT INFORMATION
  Report Type: 
  Country: None (occurrence: None)
  Receive Date: 20111014
  Receipt Date: 20111003
  Transmission Date: 20120403
  Serious: Yes (Death, Other)
  Sender: FDA-Public Use
  Company Number: US-ELI_LILLY_AND_COMPANY-US201107003855

PATIENT
  Sex: Female

DRUGS (7)
  1. LOPID [Concomitant]
  2. THYROID TAB [Concomitant]
  3. ASPIRIN [Concomitant]
  4. FORTEO [Suspect]
     Dosage: 20 UG, QD
     Route: 058
  5. LASIX [Concomitant]
  6. FORTEO [Suspect]
     Indication: OSTEOPOROSIS
     Dosage: 20 UG, QD
     Route: 058
  7. METOPROLOL TARTRATE [Concomitant]

REACTIONS (7)
  - PAIN IN EXTREMITY [None]
  - INSOMNIA [None]
  - DIZZINESS [None]
  - RESPIRATORY FAILURE [None]
  - DIARRHOEA [None]
  - DECREASED APPETITE [None]
  - CONSTIPATION [None]
